FAERS Safety Report 25898196 (Version 2)
Quarter: 2025Q4

REPORT INFORMATION
  Report Type: Spontaneous
  Country: US (occurrence: US)
  Receive Date: 20251008
  Receipt Date: 20251027
  Transmission Date: 20260118
  Serious: No
  Sender: ELI LILLY AND COMPANY
  Company Number: US-ELI_LILLY_AND_COMPANY-US202510003441

PATIENT
  Age: 64 Year
  Sex: Female

DRUGS (5)
  1. EBGLYSS [Suspect]
     Active Substance: LEBRIKIZUMAB-LBKZ
     Indication: Eczema
     Dosage: LOADING DOSE: 2 SHOTS
     Route: 065
     Dates: start: 20250710
  2. EBGLYSS [Suspect]
     Active Substance: LEBRIKIZUMAB-LBKZ
     Dosage: SINGLE DOSE
     Route: 065
     Dates: start: 20250815
  3. EBGLYSS [Suspect]
     Active Substance: LEBRIKIZUMAB-LBKZ
     Dosage: SINGLE DOSE
     Route: 065
     Dates: start: 20250901
  4. EBGLYSS [Suspect]
     Active Substance: LEBRIKIZUMAB-LBKZ
     Dosage: SINGLE DOSE
     Route: 065
     Dates: start: 20250917
  5. EBGLYSS [Suspect]
     Active Substance: LEBRIKIZUMAB-LBKZ
     Dosage: SINGLE DOSE
     Route: 065
     Dates: start: 20250930

REACTIONS (9)
  - Erythema [Not Recovered/Not Resolved]
  - Eye discharge [Not Recovered/Not Resolved]
  - Dermatitis allergic [Not Recovered/Not Resolved]
  - Skin warm [Not Recovered/Not Resolved]
  - Flushing [Recovered/Resolved]
  - Stress [Unknown]
  - Feeding disorder [Unknown]
  - Skin exfoliation [Unknown]
  - Incorrect dose administered [Unknown]

NARRATIVE: CASE EVENT DATE: 20250815
